FAERS Safety Report 5824220-4 (Version None)
Quarter: 2008Q3

REPORT INFORMATION
  Report Type: 
  Country: None (occurrence: None)
  Receive Date: 20080728
  Receipt Date: 20080718
  Transmission Date: 20090109
  Serious: Yes (Hospitalization)
  Sender: FDA-Public Use
  Company Number: PHHO2008GB08102

PATIENT
  Sex: Male

DRUGS (2)
  1. STI571/CGP57148B T35717+CAPS [Suspect]
     Indication: GASTROINTESTINAL STROMAL TUMOUR
     Dosage: 800 MG, QD
     Route: 048
     Dates: start: 20011116, end: 20080620
  2. STI571/CGP57148B T35717+CAPS [Suspect]
     Dosage: UNK
     Dates: start: 20080621, end: 20080703

REACTIONS (8)
  - ANAL FISSURE [None]
  - HAEMATOMA [None]
  - HAEMATOMA EVACUATION [None]
  - HAEMORRHOID OPERATION [None]
  - HAEMORRHOIDS [None]
  - INFECTION [None]
  - PROCTALGIA [None]
  - RECTAL OBSTRUCTION [None]
